FAERS Safety Report 8668826 (Version 6)
Quarter: 2013Q3

REPORT INFORMATION
  Report Type: Report from Study
  Country: CA (occurrence: CA)
  Receive Date: 20120717
  Receipt Date: 20130718
  Transmission Date: 20140515
  Serious: Yes (Death, Other)
  Sender: FDA-Public Use
  Company Number: PHHY2012CA042394

PATIENT
  Age: 73 Year
  Sex: Male

DRUGS (1)
  1. SANDOSTATIN LAR [Suspect]
     Indication: CARCINOID TUMOUR OF THE STOMACH
     Dosage: 30 MG ONCE A MONTH
     Route: 030
     Dates: start: 20091023

REACTIONS (3)
  - Death [Fatal]
  - Cerebrovascular accident [Unknown]
  - Biliary colic [Unknown]
